FAERS Safety Report 8307947-4 (Version None)
Quarter: 2012Q2

REPORT INFORMATION
  Report Type: 
  Country: None (occurrence: None)
  Receive Date: 20120424
  Receipt Date: 20110610
  Transmission Date: 20120825
  Serious: Yes (Hospitalization)
  Sender: FDA-Public Use
  Company Number: US-GLAXOSMITHKLINE-A0934405A

PATIENT
  Age: 41 Year
  Sex: Male

DRUGS (1)
  1. ROSIGLITAZONE MALEATE [Suspect]
     Indication: DIABETES MELLITUS
     Route: 048

REACTIONS (6)
  - MYOCARDIAL INFARCTION [None]
  - DYSPNOEA [None]
  - CHEST PAIN [None]
  - EMERGENCY CARE EXAMINATION [None]
  - CARDIAC DISORDER [None]
  - PAIN [None]
